FAERS Safety Report 6373607-2 (Version None)
Quarter: 2009Q3

REPORT INFORMATION
  Report Type: 
  Country: None (occurrence: None)
  Receive Date: 20090924
  Receipt Date: 20090914
  Transmission Date: 20100115
  Serious: Yes (Hospitalization)
  Sender: FDA-Public Use
  Company Number: FR-PFIZER INC-2009267904

PATIENT
  Age: 19 Year

DRUGS (3)
  1. ZITHROMAX [Suspect]
     Dosage: UNK
     Route: 048
     Dates: start: 20090615, end: 20090620
  2. AUGMENTIN [Suspect]
     Dosage: UNK
     Dates: start: 20090623, end: 20090624
  3. IBUPROFEN [Concomitant]
     Dosage: UNK
     Route: 048
     Dates: start: 20090620

REACTIONS (1)
  - RASH MORBILLIFORM [None]
